FAERS Safety Report 9204345 (Version 1)
Quarter: 2013Q2

REPORT INFORMATION
  Report Type: Spontaneous
  Country: US (occurrence: US)
  Receive Date: 20130402
  Receipt Date: 20130402
  Transmission Date: 20140414
  Serious: No
  Sender: FDA-Public Use
  Company Number: US-B.I. PHARMACEUTICALS,INC./RIDGEFIELD-2013-BI-07806BP

PATIENT
  Age: 83 Year
  Sex: Female

DRUGS (5)
  1. PRADAXA [Suspect]
     Indication: ANTICOAGULANT THERAPY
     Dosage: 300 MG
     Route: 048
     Dates: start: 201106, end: 201201
  2. PRADAXA [Suspect]
     Indication: ATRIAL FIBRILLATION
     Dosage: 300 MG
     Route: 048
     Dates: start: 201303
  3. SPIRIVA [Suspect]
     Indication: CHRONIC OBSTRUCTIVE PULMONARY DISEASE
     Dosage: 18 MCG
     Route: 055
     Dates: start: 201302
  4. DIGOXIN [Concomitant]
     Indication: HEART RATE DECREASED
     Dosage: 0.25 MG
     Route: 048
     Dates: start: 201303
  5. CARDIZEM [Concomitant]
     Indication: HEART RATE DECREASED
     Dosage: 100 MG
     Route: 048
     Dates: start: 201303

REACTIONS (1)
  - Atrial fibrillation [Not Recovered/Not Resolved]
